FAERS Safety Report 23684391 (Version 1)
Quarter: 2024Q1

REPORT INFORMATION
  Report Type: Spontaneous
  Country: CN (occurrence: CN)
  Receive Date: 20240328
  Receipt Date: 20240328
  Transmission Date: 20240410
  Serious: Yes (Hospitalization)
  Sender: FDA-Public Use
  Company Number: CN-PFIZER INC-PV202400040099

PATIENT
  Age: 32 Year
  Sex: Female
  Weight: 73 kg

DRUGS (2)
  1. AZITHROMYCIN [Suspect]
     Active Substance: AZITHROMYCIN
     Indication: Pneumonia
     Dosage: 0.5 G, 1X/DAY
     Route: 048
     Dates: start: 202402, end: 202403
  2. HERBALS [Suspect]
     Active Substance: HERBALS
     Indication: Pneumonia
     Dosage: 10 G, 3X/DAY
     Route: 048
     Dates: start: 202402, end: 202403

REACTIONS (6)
  - Drug eruption [Recovering/Resolving]
  - Erythema [Recovering/Resolving]
  - Rash pustular [Recovering/Resolving]
  - Skin exfoliation [Recovering/Resolving]
  - Peripheral swelling [Recovering/Resolving]
  - Pruritus [Recovering/Resolving]

NARRATIVE: CASE EVENT DATE: 20240301
